FAERS Safety Report 7352478-1 (Version None)
Quarter: 2011Q1

REPORT INFORMATION
  Report Type: 
  Country: None (occurrence: None)
  Receive Date: 20110315
  Receipt Date: 20110302
  Transmission Date: 20110831
  Serious: Yes (Other)
  Sender: FDA-Public Use
  Company Number: PHHY2010BR56346

PATIENT
  Age: 49 Year
  Sex: Female

DRUGS (1)
  1. DIOVAN TRIPLE [Suspect]
     Indication: BLOOD PRESSURE
     Dosage: 1 TABLET DAILY, 160/5/12.5 MG

REACTIONS (3)
  - GAIT DISTURBANCE [None]
  - ARTHROPATHY [None]
  - PAIN [None]
